FAERS Safety Report 11358215 (Version 1)
Quarter: 2015Q3

REPORT INFORMATION
  Report Type: Spontaneous
  Country: US (occurrence: US)
  Receive Date: 20150803
  Receipt Date: 20150803
  Transmission Date: 20151125
  Serious: No
  Sender: FDA-Public Use
  Company Number: US-ELI_LILLY_AND_COMPANY-US200811000226

PATIENT
  Age: 35 Year
  Sex: Female

DRUGS (2)
  1. STRATTERA [Suspect]
     Active Substance: ATOMOXETINE HYDROCHLORIDE
     Indication: ATTENTION DEFICIT/HYPERACTIVITY DISORDER
     Dosage: 40 MG, UNKNOWN
     Route: 065
     Dates: start: 200810, end: 20081024
  2. STRATTERA [Suspect]
     Active Substance: ATOMOXETINE HYDROCHLORIDE
     Dosage: 40 MG, UNKNOWN
     Route: 065
     Dates: start: 20081028

REACTIONS (6)
  - Drug dose omission [Unknown]
  - Mood altered [Not Recovered/Not Resolved]
  - Paraesthesia [Unknown]
  - No therapeutic response [Unknown]
  - Disturbance in attention [Unknown]
  - Feeling hot [Unknown]

NARRATIVE: CASE EVENT DATE: 200810
